FAERS Safety Report 4640126-0 (Version None)
Quarter: 2005Q2

REPORT INFORMATION
  Report Type: 
  Country: None (occurrence: None)
  Receive Date: 20050420
  Receipt Date: 20050412
  Transmission Date: 20051028
  Serious: Yes (Hospitalization)
  Sender: FDA-Public Use
  Company Number: NL-ROCHE-401520

PATIENT
  Age: 51 Year
  Sex: Female

DRUGS (2)
  1. NAPROVITE [Suspect]
     Route: 048
     Dates: start: 20041123, end: 20041203
  2. NASONEX [Concomitant]
     Dosage: FORM REPORTED AS SPRAY.
     Route: 045

REACTIONS (3)
  - AMNESIA [None]
  - DIZZINESS [None]
  - TRANSIENT ISCHAEMIC ATTACK [None]
